FAERS Safety Report 4331531-0 (Version None)
Quarter: 2004Q2

REPORT INFORMATION
  Report Type: 
  Country: None (occurrence: None)
  Receive Date: 20040405
  Receipt Date: 20040220
  Transmission Date: 20050107
  Serious: Yes (Hospitalization, Other)
  Sender: FDA-Public Use
  Company Number: US-BRISTOL-MYERS SQUIBB COMPANY-12513362

PATIENT
  Age: 9 Year
  Sex: Male

DRUGS (2)
  1. ABILIFY [Suspect]
     Indication: PERVASIVE DEVELOPMENTAL DISORDER
     Route: 048
     Dates: start: 20040129, end: 20040202
  2. FOCALIN [Concomitant]

REACTIONS (2)
  - HYPERSENSITIVITY [None]
  - RASH MACULO-PAPULAR [None]
